FAERS Safety Report 10372113 (Version 10)
Quarter: 2015Q2

REPORT INFORMATION
  Report Type: Spontaneous
  Country: US (occurrence: US)
  Receive Date: 20140808
  Receipt Date: 20150514
  Transmission Date: 20150821
  Serious: Yes (Hospitalization, Other)
  Sender: FDA-Public Use
  Company Number: US-009507513-1407USA014407

PATIENT
  Sex: Female
  Weight: 53.97 kg

DRUGS (7)
  1. FOSAMAX [Suspect]
     Active Substance: ALENDRONATE SODIUM
     Indication: OSTEOPOROSIS
  2. ALENDRONATE SODIUM. [Suspect]
     Active Substance: ALENDRONATE SODIUM
     Indication: OSTEOPETROSIS
  3. FOSAMAX [Suspect]
     Active Substance: ALENDRONATE SODIUM
     Indication: OSTEOPENIA
     Dosage: 70 MG, QW
     Route: 048
     Dates: start: 20050209, end: 20060508
  4. ALENDRONATE SODIUM. [Suspect]
     Active Substance: ALENDRONATE SODIUM
     Indication: OSTEOPENIA
     Dosage: 70 MG, UNK
     Route: 048
     Dates: start: 20100211, end: 20121031
  5. ALENDRONATE SODIUM. [Suspect]
     Active Substance: ALENDRONATE SODIUM
     Indication: OSTEOPOROSIS
  6. ESTRACE [Concomitant]
     Active Substance: ESTRADIOL
     Indication: HORMONE THERAPY
     Dosage: UNK, QD
     Dates: start: 1977
  7. FOSAMAX [Suspect]
     Active Substance: ALENDRONATE SODIUM
     Indication: OSTEOPETROSIS

REACTIONS (44)
  - Intramedullary rod insertion [Unknown]
  - Malignant melanoma [Unknown]
  - Femur fracture [Recovered/Resolved]
  - Medical device pain [Unknown]
  - Low turnover osteopathy [Unknown]
  - Adverse drug reaction [Unknown]
  - Hypercalciuria [Unknown]
  - Fracture nonunion [Unknown]
  - Sciatica [Unknown]
  - Osteopenia [Unknown]
  - Drug ineffective [Unknown]
  - Intramedullary rod insertion [Unknown]
  - Osteoarthritis [Unknown]
  - Nephrolithiasis [Unknown]
  - Appendicectomy [Unknown]
  - Fracture nonunion [Unknown]
  - Foot fracture [Unknown]
  - Chest X-ray abnormal [Unknown]
  - Hypokalaemia [Unknown]
  - Femur fracture [Recovered/Resolved]
  - Neuroma [Unknown]
  - Selective IgA immunodeficiency [Unknown]
  - Coeliac disease [Unknown]
  - Fall [Unknown]
  - Medical device removal [Unknown]
  - Cancer surgery [Unknown]
  - Cholecystectomy [Unknown]
  - Foot fracture [Recovering/Resolving]
  - Osteoarthritis [Unknown]
  - Liver function test abnormal [Unknown]
  - Foot fracture [Unknown]
  - Medical device removal [Unknown]
  - Hypothyroidism [Unknown]
  - Medical device complication [Unknown]
  - Ankle fracture [Unknown]
  - Hypophosphataemia [Unknown]
  - Migraine [Unknown]
  - Gastrointestinal disorder [Unknown]
  - Fracture nonunion [Unknown]
  - Glycosylated haemoglobin increased [Unknown]
  - Tendon disorder [Unknown]
  - Foot fracture [Unknown]
  - Iliotibial band syndrome [Unknown]
  - Haemorrhagic anaemia [Recovered/Resolved]

NARRATIVE: CASE EVENT DATE: 201208
